FAERS Safety Report 5804146-2 (Version None)
Quarter: 2008Q3

REPORT INFORMATION
  Report Type: 
  Country: None (occurrence: None)
  Receive Date: 20080707
  Receipt Date: 20080707
  Transmission Date: 20090109
  Serious: Yes (Other)
  Sender: FDA-Public Use
  Company Number: None

PATIENT

DRUGS (1)
  1. LEVOTHYROXINE SODIUM [Suspect]
     Dosage: APPROX 30
     Dates: start: 20080519, end: 20080627

REACTIONS (2)
  - DRUG LEVEL BELOW THERAPEUTIC [None]
  - HYPOTHYROIDISM [None]
